FAERS Safety Report 4659491-3 (Version None)
Quarter: 2005Q2

REPORT INFORMATION
  Report Type: 
  Country: None (occurrence: None)
  Receive Date: 20050412
  Receipt Date: 20050217
  Transmission Date: 20051028
  Serious: No
  Sender: FDA-Public Use
  Company Number: 2005S1000026

PATIENT
  Age: 74 Year
  Sex: Female
  Weight: 61.4 kg

DRUGS (3)
  1. CUBICIN [Suspect]
     Indication: ARTHRITIS INFECTIVE
     Dosage: 8 MG/KG; Q24H; IV
     Route: 042
     Dates: start: 20050124, end: 20050129
  2. CUBICIN [Suspect]
     Indication: STAPHYLOCOCCAL INFECTION
     Dosage: 8 MG/KG; Q24H; IV
     Route: 042
     Dates: start: 20050124, end: 20050129
  3. VANCOMYCIN [Concomitant]

REACTIONS (1)
  - BLOOD CREATININE INCREASED [None]
